FAERS Safety Report 17214288 (Version 1)
Quarter: 2019Q4

REPORT INFORMATION
  Report Type: Spontaneous
  Country: BR (occurrence: BR)
  Receive Date: 20191230
  Receipt Date: 20191230
  Transmission Date: 20200122
  Serious: Yes (Death, Other)
  Sender: FDA-Public Use
  Company Number: BR-CELGENEUS-BRA-20191209849

PATIENT
  Age: 61 Year
  Sex: Female

DRUGS (1)
  1. VIDAZA [Suspect]
     Active Substance: AZACITIDINE
     Indication: MYELODYSPLASTIC SYNDROME
     Route: 065
     Dates: start: 20190101, end: 20191125

REACTIONS (3)
  - Leukaemia [Fatal]
  - Urinary tract infection [Unknown]
  - Urosepsis [Fatal]

NARRATIVE: CASE EVENT DATE: 2019
